FAERS Safety Report 24293434 (Version 1)
Quarter: 2024Q3

REPORT INFORMATION
  Report Type: Report from Study
  Country: JP (occurrence: JP)
  Receive Date: 20240906
  Receipt Date: 20240906
  Transmission Date: 20241017
  Serious: Yes (Other)
  Sender: JAZZ
  Company Number: JP-JAZZ PHARMACEUTICALS-2024-JP-014390

PATIENT
  Age: 49 Year
  Sex: Male
  Weight: 56.3 kg

DRUGS (1)
  1. DEFITELIO [Suspect]
     Active Substance: DEFIBROTIDE SODIUM
     Indication: Venoocclusive liver disease
     Dosage: 25 MILLIGRAM/KILOGRAM, QD
     Route: 042
     Dates: start: 20230322, end: 20230412

REACTIONS (2)
  - Cystitis haemorrhagic [Recovering/Resolving]
  - Platelet count decreased [Unknown]

NARRATIVE: CASE EVENT DATE: 20230101
